FAERS Safety Report 5055351-7 (Version None)
Quarter: 2006Q3

REPORT INFORMATION
  Report Type: 
  Country: None (occurrence: None)
  Receive Date: 20060714
  Receipt Date: 20060703
  Transmission Date: 20061208
  Serious: Yes (Other)
  Sender: FDA-Public Use
  Company Number: 2006S1000162

PATIENT
  Age: 60 Year
  Sex: Female

DRUGS (3)
  1. ACITRETIN [Suspect]
     Indication: CUTANEOUS LUPUS ERYTHEMATOSUS
     Dosage: 20 MG, QD; PO
     Route: 048
  2. HYDROXYCHLOROQUINE SULFATE [Concomitant]
  3. STEROIDS [Concomitant]

REACTIONS (13)
  - ALOPECIA [None]
  - BLISTER [None]
  - CHEILITIS [None]
  - CONJUNCTIVITIS [None]
  - DISEASE RECURRENCE [None]
  - ECZEMA [None]
  - EPISTAXIS [None]
  - HYPOTRICHOSIS [None]
  - LIP BLISTER [None]
  - MALAISE [None]
  - PROCTITIS [None]
  - RASH [None]
  - RECTAL HAEMORRHAGE [None]
